FAERS Safety Report 12519420 (Version 1)
Quarter: 2016Q2

REPORT INFORMATION
  Report Type: Spontaneous
  Country: US (occurrence: US)
  Receive Date: 20160630
  Receipt Date: 20160630
  Transmission Date: 20160815
  Serious: No
  Sender: FDA-Public Use
  Company Number: US-009507513-1606USA014704

PATIENT
  Age: 31 Year
  Sex: Female

DRUGS (1)
  1. DEXAMETHASONE. [Suspect]
     Active Substance: DEXAMETHASONE
     Dosage: UNK, TWO SEVEN DAY COURSES
     Route: 048

REACTIONS (1)
  - Maternal exposure timing unspecified [Recovered/Resolved]
